FAERS Safety Report 10983166 (Version 1)
Quarter: 2015Q2

REPORT INFORMATION
  Report Type: Spontaneous
  Country: US (occurrence: None)
  Receive Date: 20150402
  Receipt Date: 20150402
  Transmission Date: 20150821
  Serious: Yes (Hospitalization, Disabling, Other)
  Sender: FDA-Public Use
  Company Number: None

PATIENT
  Age: 26 Year
  Sex: Female
  Weight: 58.97 kg

DRUGS (6)
  1. HYOPHEN [Concomitant]
     Active Substance: BENZOIC ACID\HYOSCYAMINE SULFATE\METHENAMINE\METHYLENE BLUE\PHENYL SALICYLATE
  2. MEFLOQUINE [Suspect]
     Active Substance: MEFLOQUINE
     Indication: MALARIA
     Dosage: 1 PILL DAILY WITH FOOD ONCE DAILY TAKEN BY MOUTH
     Route: 048
     Dates: start: 20090228, end: 20110217
  3. AMITRIPTYLINE [Concomitant]
     Active Substance: AMITRIPTYLINE
  4. MEFLOQUINE [Suspect]
     Active Substance: MEFLOQUINE
     Indication: PROPHYLAXIS
     Dosage: 1 PILL DAILY WITH FOOD ONCE DAILY TAKEN BY MOUTH
     Route: 048
     Dates: start: 20090228, end: 20110217
  5. AMITRIPTYLINE [Concomitant]
     Active Substance: AMITRIPTYLINE
  6. HYDROXYZINE [Concomitant]
     Active Substance: HYDROXYZINE\HYDROXYZINE HYDROCHLORIDE

REACTIONS (9)
  - Alopecia [None]
  - Cystitis interstitial [None]
  - Sleep disorder [None]
  - Bladder disorder [None]
  - Pain [None]
  - Asthenia [None]
  - Disorientation [None]
  - Skin disorder [None]
  - Discomfort [None]
